FAERS Safety Report 7775357-4 (Version None)
Quarter: 2011Q3

REPORT INFORMATION
  Report Type: 
  Country: None (occurrence: None)
  Receive Date: 20110923
  Receipt Date: 20110913
  Transmission Date: 20111222
  Serious: Yes (Other)
  Sender: FDA-Public Use
  Company Number: PHEH2011US04133

PATIENT
  Sex: Female

DRUGS (15)
  1. JANUMET [Concomitant]
     Dosage: UNK
  2. DIGOXIN [Concomitant]
     Dosage: UNK
  3. TYLENOL-500 [Concomitant]
     Dosage: UNK
  4. CRESTOR [Concomitant]
     Dosage: UNK
  5. DIOVAN [Suspect]
     Dosage: 80 MG, (HALF TABLET), QD
  6. ALLOPURINOL [Concomitant]
     Dosage: UNK UKN, UNK
  7. GLIPIZIDE [Concomitant]
     Dosage: UNK
  8. CARVEDILOL [Concomitant]
     Dosage: UNK
  9. FUROSEMIDE [Concomitant]
     Dosage: UNK
  10. ZOLPIDEM [Concomitant]
     Dosage: UNK
  11. LOTRONEX [Concomitant]
     Dosage: UNK
  12. PAROXETINE HYDROCHLORIDE [Concomitant]
     Dosage: UNK
  13. NITROGLYCERIN [Concomitant]
     Dosage: UNK
  14. ASPIRIN [Concomitant]
     Dosage: 1 DF, DAILY
  15. HYOSCYAMINE [Concomitant]

REACTIONS (2)
  - WRONG TECHNIQUE IN DRUG USAGE PROCESS [None]
  - IRRITABLE BOWEL SYNDROME [None]
